FAERS Safety Report 8029989-9 (Version None)
Quarter: 2012Q1

REPORT INFORMATION
  Report Type: 
  Country: None (occurrence: None)
  Receive Date: 20120109
  Receipt Date: 20111230
  Transmission Date: 20120608
  Serious: No
  Sender: FDA-Public Use
  Company Number: US-JNJFOC-20120100246

PATIENT
  Sex: Female
  Weight: 98.88 kg

DRUGS (14)
  1. DURAGESIC-100 [Suspect]
     Indication: SYSTEMIC LUPUS ERYTHEMATOSUS
     Route: 062
     Dates: start: 20050101
  2. DURAGESIC-100 [Suspect]
     Indication: OSTEOPOROSIS
     Route: 062
     Dates: start: 20050101
  3. DURAGESIC-100 [Suspect]
     Route: 062
     Dates: end: 20111227
  4. FENTANYL-100 [Suspect]
     Indication: OSTEOPOROSIS
     Route: 062
     Dates: start: 20111228, end: 20111229
  5. PERCOCET [Concomitant]
     Indication: SYSTEMIC LUPUS ERYTHEMATOSUS
     Route: 048
     Dates: start: 20050101
  6. FENTANYL-100 [Suspect]
     Indication: RHEUMATOID ARTHRITIS
     Route: 062
     Dates: start: 20111228, end: 20111229
  7. PERCOCET [Concomitant]
     Indication: OSTEOPOROSIS
     Route: 048
     Dates: start: 20050101
  8. VITAMIN [Concomitant]
     Indication: NUTRITIONAL SUPPORT
     Route: 048
  9. DURAGESIC-100 [Suspect]
     Route: 062
     Dates: end: 20111227
  10. FENTANYL-100 [Suspect]
     Indication: SYSTEMIC LUPUS ERYTHEMATOSUS
     Route: 062
     Dates: start: 20111228, end: 20111229
  11. XANAX [Concomitant]
     Indication: PANIC ATTACK
     Route: 048
     Dates: start: 20030101
  12. DURAGESIC-100 [Suspect]
     Route: 062
     Dates: end: 20111227
  13. PERCOCET [Concomitant]
     Indication: RHEUMATOID ARTHRITIS
     Route: 048
     Dates: start: 20050101
  14. DURAGESIC-100 [Suspect]
     Indication: RHEUMATOID ARTHRITIS
     Route: 062
     Dates: start: 20050101

REACTIONS (7)
  - WRONG TECHNIQUE IN DRUG USAGE PROCESS [None]
  - PYREXIA [None]
  - NAUSEA [None]
  - PRODUCT QUALITY ISSUE [None]
  - OVERDOSE [None]
  - MIGRAINE [None]
  - ADVERSE DRUG REACTION [None]
